FAERS Safety Report 9393015 (Version 1)
Quarter: 2013Q3

REPORT INFORMATION
  Report Type: Spontaneous
  Country: US (occurrence: US)
  Receive Date: 20130710
  Receipt Date: 20130710
  Transmission Date: 20140515
  Serious: Yes (Other)
  Sender: FDA-Public Use
  Company Number: US-PFIZER INC-2013201908

PATIENT
  Age: 38 Year
  Sex: Female
  Weight: 90.7 kg

DRUGS (6)
  1. EFFEXOR XR [Suspect]
     Indication: BIPOLAR DISORDER
     Dosage: 225 MG, 1X/DAY
     Route: 048
     Dates: end: 20130626
  2. LAMICTAL [Concomitant]
     Dosage: 200 MG, 2X/DAY
  3. LASIX [Concomitant]
     Dosage: 40 MG, UNK
  4. SEROQUEL [Concomitant]
     Dosage: 400 MG, 1X/DAY
  5. DIGOXIN [Concomitant]
     Indication: CARDIAC DISORDER
     Dosage: UNK
  6. CLONIDINE [Concomitant]
     Dosage: 0.2 MG, UNK

REACTIONS (3)
  - Convulsion [Not Recovered/Not Resolved]
  - Vomiting [Not Recovered/Not Resolved]
  - Malaise [Not Recovered/Not Resolved]
